FAERS Safety Report 9478712 (Version 1)
Quarter: 2013Q3

REPORT INFORMATION
  Report Type: Report from Study
  Country: US (occurrence: US)
  Receive Date: 20130827
  Receipt Date: 20130827
  Transmission Date: 20140515
  Serious: Yes (Other)
  Sender: FDA-Public Use
  Company Number: US-ROCHE-1265593

PATIENT
  Sex: Female

DRUGS (15)
  1. XOLAIR [Suspect]
     Indication: ASTHMA
     Route: 058
  2. XOLAIR [Suspect]
     Indication: IDIOPATHIC URTICARIA
     Dosage: DIVIDED INTO BOTH ARMS
     Route: 058
     Dates: start: 20130812
  3. XOLAIR [Suspect]
     Route: 058
     Dates: start: 20130703
  4. XOLAIR [Suspect]
     Dosage: DIVIDED INTO BOTH ARMS
     Route: 058
     Dates: start: 20130619
  5. XOLAIR [Suspect]
     Route: 058
     Dates: start: 20130523
  6. XOLAIR [Suspect]
     Route: 058
  7. AMBIEN [Concomitant]
  8. LEXAPRO [Concomitant]
     Route: 065
  9. EPIPEN [Concomitant]
     Route: 065
  10. ZYRTEC [Concomitant]
  11. PEPCID [Concomitant]
  12. DULERA [Concomitant]
     Dosage: PER ACTUATION 2 PUFFS TWICE A DAY
     Route: 065
  13. PROAIR (UNITED STATES) [Concomitant]
     Dosage: 2 PUFFS Q4-6 HRS PRN
     Route: 065
  14. SINGULAIR [Concomitant]
     Route: 065
  15. XOPENEX [Concomitant]
     Dosage: NEBS
     Route: 065
     Dates: start: 20130812, end: 20130812

REACTIONS (9)
  - Anaphylactic shock [Unknown]
  - Wheezing [Unknown]
  - Dyspnoea [Unknown]
  - Chest discomfort [Recovered/Resolved]
  - Asthma [Unknown]
  - Movement disorder [Unknown]
  - Anxiety [Unknown]
  - Osteoarthritis [Unknown]
  - Urticaria [Not Recovered/Not Resolved]
